FAERS Safety Report 6214158-5 (Version None)
Quarter: 2009Q2

REPORT INFORMATION
  Report Type: 
  Country: None (occurrence: None)
  Receive Date: 20090602
  Receipt Date: 20090520
  Transmission Date: 20091009
  Serious: Yes (Other)
  Sender: FDA-Public Use
  Company Number: 230287K09BRA

PATIENT
  Age: 41 Year
  Sex: Male

DRUGS (2)
  1. REBIF [Suspect]
     Dates: start: 20070501, end: 20080501
  2. REBIF [Suspect]
     Dates: start: 20040923

REACTIONS (2)
  - CHILLS [None]
  - CONVULSION [None]
